FAERS Safety Report 4955117-X (Version None)
Quarter: 2006Q1

REPORT INFORMATION
  Report Type: 
  Country: None (occurrence: None)
  Receive Date: 20060322
  Receipt Date: 20060302
  Transmission Date: 20060701
  Serious: Yes (Other)
  Sender: FDA-Public Use
  Company Number: US200512002529

PATIENT
  Age: 47 Year
  Sex: Male

DRUGS (2)
  1. INSULIN NORDISK MIXTARD (PORK) [Suspect]
     Indication: DIABETES MELLITUS
     Dates: start: 19630101
  2. INSULIN, ANIMAL (INSULIN, ANIMAL BEEF REGULAR) VIAL [Suspect]
     Indication: DIABETES MELLITUS
     Dates: start: 19630101

REACTIONS (8)
  - BLINDNESS [None]
  - BLOOD GLUCOSE FLUCTUATION [None]
  - CONFUSIONAL STATE [None]
  - DYSARTHRIA [None]
  - HEPATIC FAILURE [None]
  - HEPATITIS B [None]
  - HYPERHIDROSIS [None]
  - RETINAL DISORDER [None]
